FAERS Safety Report 20849177 (Version 1)
Quarter: 2022Q2

REPORT INFORMATION
  Report Type: Spontaneous
  Country: US (occurrence: US)
  Receive Date: 20220519
  Receipt Date: 20220519
  Transmission Date: 20220720
  Serious: No
  Sender: FDA-Public Use
  Company Number: US-TEVA-2022-US-2032197

PATIENT
  Age: 68 Year

DRUGS (2)
  1. INDERAL [Suspect]
     Active Substance: PROPRANOLOL HYDROCHLORIDE
     Indication: Migraine prophylaxis
     Route: 065
     Dates: start: 19960101
  2. FIORICET [Suspect]
     Active Substance: ACETAMINOPHEN\BUTALBITAL\CAFFEINE
     Indication: Migraine prophylaxis
     Route: 065
     Dates: start: 1996

REACTIONS (3)
  - Therapeutic product effect decreased [Unknown]
  - Medication overuse headache [Unknown]
  - Drug ineffective [Unknown]
